FAERS Safety Report 7322006-5 (Version None)
Quarter: 2011Q1

REPORT INFORMATION
  Report Type: 
  Country: None (occurrence: None)
  Receive Date: 20110216
  Receipt Date: 20110208
  Transmission Date: 20110831
  Serious: Yes (Hospitalization, Other)
  Sender: FDA-Public Use
  Company Number: 2010EN000172

PATIENT
  Age: 16 Year
  Sex: Male
  Weight: 103 kg

DRUGS (14)
  1. MERCAPTOPURINE [Suspect]
     Indication: ACUTE LYMPHOCYTIC LEUKAEMIA
     Dosage: 3800 MG; PO
     Route: 048
     Dates: end: 20100725
  2. METHOTREXATE [Concomitant]
  3. ACTIGALL [Suspect]
     Indication: PRODUCT USED FOR UNKNOWN INDICATION
  4. ONCASPAR [Suspect]
     Indication: ACUTE LYMPHOCYTIC LEUKAEMIA
     Dosage: (6050 IU; X1; IV) (5637.5 IU;X1;IV) (5637.5 IU;X1;IV)
     Route: 042
     Dates: start: 20100726, end: 20100726
  5. ONCASPAR [Suspect]
     Indication: ACUTE LYMPHOCYTIC LEUKAEMIA
     Dosage: (6050 IU; X1; IV) (5637.5 IU;X1;IV) (5637.5 IU;X1;IV)
     Route: 042
     Dates: start: 20100510, end: 20100510
  6. ONCASPAR [Suspect]
     Indication: ACUTE LYMPHOCYTIC LEUKAEMIA
     Dosage: (6050 IU; X1; IV) (5637.5 IU;X1;IV) (5637.5 IU;X1;IV)
     Route: 042
     Dates: start: 20100625, end: 20100625
  7. PREVACID [Suspect]
     Indication: PRODUCT USED FOR UNKNOWN INDICATION
  8. DAUNORUBICIN [Suspect]
     Indication: ACUTE LYMPHOCYTIC LEUKAEMIA
     Dosage: 240 MG; IV
     Route: 042
     Dates: start: 20100507, end: 20100528
  9. VINCRISTINE [Suspect]
     Indication: ACUTE LYMPHOCYTIC LEUKAEMIA
     Dosage: (8MG; IV) (8 MG; IV)
     Route: 042
     Dates: start: 20100507, end: 20100528
  10. VINCRISTINE [Suspect]
     Indication: ACUTE LYMPHOCYTIC LEUKAEMIA
     Dosage: (8MG; IV) (8 MG; IV)
     Route: 042
     Dates: end: 20100802
  11. PREDNISONE [Concomitant]
  12. BACTRIM [Suspect]
     Indication: PRODUCT USED FOR UNKNOWN INDICATION
  13. CYTARABINE [Concomitant]
  14. CYCLOPHOSPHAMIDE [Concomitant]

REACTIONS (9)
  - HYPERCHOLESTEROLAEMIA [None]
  - BLOOD FIBRINOGEN DECREASED [None]
  - HEPATOMEGALY [None]
  - GALLBLADDER DISORDER [None]
  - OCULAR ICTERUS [None]
  - HYPERGLYCAEMIA [None]
  - HYPERTRIGLYCERIDAEMIA [None]
  - INTERNATIONAL NORMALISED RATIO INCREASED [None]
  - HEPATIC STEATOSIS [None]
